FAERS Safety Report 7742868-7 (Version None)
Quarter: 2011Q3

REPORT INFORMATION
  Report Type: 
  Country: None (occurrence: None)
  Receive Date: 20110912
  Receipt Date: 20110901
  Transmission Date: 20111222
  Serious: Yes (Other)
  Sender: FDA-Public Use
  Company Number: US-UCBSA-040576

PATIENT
  Sex: Male
  Weight: 74.84 kg

DRUGS (5)
  1. LISINOPRIL [Concomitant]
     Indication: HYPERTENSION
     Route: 048
     Dates: start: 20110101
  2. PAXIL [Concomitant]
     Indication: ANXIETY
     Route: 048
     Dates: start: 19990101
  3. CIMZIA [Suspect]
     Indication: RHEUMATOID ARTHRITIS
     Route: 058
     Dates: start: 20110608, end: 20110622
  4. PREDNISONE [Concomitant]
     Indication: RHEUMATOID ARTHRITIS
     Dosage: STARTED 16 YEARS AGO
     Route: 048
  5. MONOCYCLINE [Concomitant]
     Indication: SKIN INFECTION
     Route: 048
     Dates: start: 20110101

REACTIONS (1)
  - LUNG INFECTION [None]
